FAERS Safety Report 8302487-0 (Version None)
Quarter: 2012Q2

REPORT INFORMATION
  Report Type: 
  Country: None (occurrence: None)
  Receive Date: 20120418
  Receipt Date: 20120406
  Transmission Date: 20120825
  Serious: Yes (Hospitalization)
  Sender: FDA-Public Use
  Company Number: JP-ELI_LILLY_AND_COMPANY-JP201204003634

PATIENT
  Age: 66 Year
  Sex: Female

DRUGS (1)
  1. ZYPREXA [Suspect]
     Dosage: UNK
     Route: 048

REACTIONS (7)
  - ADJUSTMENT DISORDER [None]
  - RESTLESSNESS [None]
  - OFF LABEL USE [None]
  - CONTRAINDICATION TO MEDICAL TREATMENT [None]
  - SOMNOLENCE [None]
  - HALLUCINATION [None]
  - GENITAL NEOPLASM MALIGNANT FEMALE [None]
